FAERS Safety Report 6926040-6 (Version None)
Quarter: 2010Q3

REPORT INFORMATION
  Report Type: 
  Country: None (occurrence: None)
  Receive Date: 20100816
  Receipt Date: 20100322
  Transmission Date: 20110219
  Serious: Yes (Life-Threatening, Other)
  Sender: FDA-Public Use
  Company Number: US-BAYER-200941159NA

PATIENT
  Age: 16 Year
  Sex: Female
  Weight: 66 kg

DRUGS (15)
  1. YAZ [Suspect]
     Indication: MENSTRUATION IRREGULAR
     Route: 048
     Dates: start: 20080918, end: 20090210
  2. ORTHO TRI-CYCLEN [Suspect]
     Indication: MENSTRUATION IRREGULAR
     Dates: start: 20090211, end: 20090215
  3. PULMICORT [Concomitant]
     Indication: PRODUCT USED FOR UNKNOWN INDICATION
     Dates: start: 20070101
  4. PROAIR HFA [Concomitant]
     Indication: PRODUCT USED FOR UNKNOWN INDICATION
     Route: 055
     Dates: start: 20070101
  5. NOVOLOG [Concomitant]
     Indication: PRODUCT USED FOR UNKNOWN INDICATION
     Dates: start: 20020101
  6. LANTUS [Concomitant]
     Indication: PRODUCT USED FOR UNKNOWN INDICATION
     Dates: start: 20020101
  7. CLINDAMYCIN [Concomitant]
     Indication: PRODUCT USED FOR UNKNOWN INDICATION
     Dates: start: 20080601, end: 20080601
  8. SODIUM CHLORIDE 0.9% [Concomitant]
     Indication: PRODUCT USED FOR UNKNOWN INDICATION
     Route: 042
     Dates: start: 20090215
  9. INSULIN [Concomitant]
     Indication: BLOOD GLUCOSE INCREASED
     Route: 041
     Dates: start: 20090215
  10. POTASSIUM CHLORIDE [Concomitant]
     Indication: PRODUCT USED FOR UNKNOWN INDICATION
     Dates: start: 20090216
  11. LASIX [Concomitant]
     Indication: FLUID OVERLOAD
     Dates: start: 20090216
  12. ULTRAM [Concomitant]
     Indication: PAIN
     Dates: start: 20090218
  13. PERCOCET [Concomitant]
     Indication: PAIN
     Dates: start: 20090218
  14. CEPHALOSPORIN [Concomitant]
     Indication: COUGH
  15. MULTIPLE BLOOD PRODUCTS [Concomitant]
     Indication: POST PROCEDURAL HAEMORRHAGE

REACTIONS (12)
  - ASPHYXIA [None]
  - CARDIAC ARREST [None]
  - CHEST PAIN [None]
  - COUGH [None]
  - DIZZINESS [None]
  - DYSPNOEA [None]
  - HEPATIC FUNCTION ABNORMAL [None]
  - OXYGEN SATURATION DECREASED [None]
  - PAIN IN EXTREMITY [None]
  - PANCREATITIS [None]
  - PULMONARY ARTERY THROMBOSIS [None]
  - RENAL FAILURE ACUTE [None]
